FAERS Safety Report 8588460-6 (Version None)
Quarter: 2012Q3

REPORT INFORMATION
  Report Type: 
  Country: None (occurrence: None)
  Receive Date: 20120813
  Receipt Date: 20120801
  Transmission Date: 20120928
  Serious: No
  Sender: FDA-Public Use
  Company Number: CA-JNJFOC-20120802567

PATIENT
  Sex: Male
  Weight: 59 kg

DRUGS (6)
  1. TYLENOL [Concomitant]
     Route: 065
  2. BACLOFEN [Concomitant]
     Route: 065
  3. BENADRYL [Concomitant]
     Route: 065
  4. REMICADE [Suspect]
     Indication: CROHN'S DISEASE
     Route: 042
     Dates: start: 20090303
  5. HYDROCORTISONE [Concomitant]
     Route: 042
  6. LORAZEPAM [Concomitant]
     Route: 065

REACTIONS (1)
  - HERPES ZOSTER [None]
